FAERS Safety Report 6043169 (Version 15)
Quarter: 2012Q4

REPORT INFORMATION
  Report Type: 
  Country: US (occurrence: US)
  Receive Date: 20060511
  Receipt Date: 20121205
  Transmission Date: 20130627
  Serious: Yes (Hospitalization, Other)
  Sender: FDA-Public Use
  Company Number: PHEH2006US05812

PATIENT
  Age: 76 None
  Sex: Female
  Weight: 75.74 kg

DRUGS (11)
  1. AREDIA [Suspect]
     Indication: METASTASES TO BONE
     Dosage: 90 mg, QMO
     Route: 042
     Dates: start: 200006, end: 2005
  2. ZOMETA [Suspect]
     Indication: METASTASES TO BONE
     Dosage: 4 mg, QMO
     Route: 042
     Dates: start: 20020604, end: 20020702
  3. ZOMETA [Suspect]
     Dosage: 4 mg, QMO
     Route: 042
     Dates: start: 200209, end: 2005
  4. FOSAMAX [Suspect]
  5. HERCEPTIN [Concomitant]
     Indication: BREAST CANCER
     Dates: start: 200006
  6. NAVELBINE [Concomitant]
     Indication: BREAST CANCER
     Dates: start: 200006
  7. TAXOL [Concomitant]
     Indication: BREAST CANCER
     Dates: start: 2004, end: 2005
  8. LIPITOR [Concomitant]
     Route: 048
  9. ARANESP [Concomitant]
     Dates: start: 2002
  10. DOCETAXEL [Concomitant]
  11. ASPIRIN ^BAYER^ [Concomitant]

REACTIONS (76)
  - Osteonecrosis of jaw [Unknown]
  - Pain [Unknown]
  - Anxiety [Unknown]
  - Gingival infection [Unknown]
  - Haemorrhage [Unknown]
  - Primary sequestrum [Unknown]
  - Bone loss [Unknown]
  - Osteitis [Unknown]
  - Oroantral fistula [Unknown]
  - Osteomyelitis [Unknown]
  - Bone disorder [Unknown]
  - Purulence [Unknown]
  - Sinus cancer metastatic [Unknown]
  - Erythema [Unknown]
  - Swelling face [Unknown]
  - Device failure [Unknown]
  - Tumour marker increased [Unknown]
  - Lymphadenopathy [Unknown]
  - Sinusitis [Unknown]
  - Infection [Unknown]
  - Breath odour [Unknown]
  - Upper-airway cough syndrome [Unknown]
  - Dysgeusia [Unknown]
  - Actinomycosis [Unknown]
  - Influenza like illness [Unknown]
  - Pyrexia [Unknown]
  - Vocal cord paralysis [Unknown]
  - Dysphonia [Unknown]
  - Hydronephrosis [Unknown]
  - Thyroid disorder [Unknown]
  - Renal failure acute [Unknown]
  - Hypertension [Unknown]
  - Acute myocardial infarction [Unknown]
  - Cardiac murmur [Unknown]
  - Pelvic pain [Unknown]
  - Pelvic fracture [Unknown]
  - Deep vein thrombosis [Unknown]
  - Anaemia [Unknown]
  - Limb injury [Unknown]
  - Cardiac disorder [Unknown]
  - Single functional kidney [Unknown]
  - Gait disturbance [Unknown]
  - Dysphagia [Unknown]
  - Visual impairment [Unknown]
  - Hearing impaired [Unknown]
  - Urinary tract infection [Unknown]
  - Constipation [Unknown]
  - Abdominal pain [Unknown]
  - Pain in extremity [Unknown]
  - Ventricular extrasystoles [Unknown]
  - Arthralgia [Unknown]
  - Rib fracture [Unknown]
  - Cellulitis [Unknown]
  - Coronary artery disease [Unknown]
  - Hypoaesthesia [Unknown]
  - Dyspnoea [Unknown]
  - Hyperhidrosis [Unknown]
  - Dizziness [Unknown]
  - Asthenia [Unknown]
  - Nausea [Unknown]
  - Diarrhoea [Unknown]
  - Atrioventricular block complete [Recovered/Resolved]
  - Sinus bradycardia [Unknown]
  - Vomiting [Unknown]
  - Cardiomyopathy [Recovering/Resolving]
  - Fatigue [Unknown]
  - Bronchospasm [Unknown]
  - Atelectasis [Unknown]
  - Pleural effusion [Unknown]
  - Urinary retention [Unknown]
  - Neuropathy peripheral [Unknown]
  - Tuberculosis [Unknown]
  - Pain in jaw [Unknown]
  - Fall [Unknown]
  - Acute coronary syndrome [Unknown]
  - Osteolysis [Unknown]
